FAERS Safety Report 9304831 (Version 1)
Quarter: 2013Q2

REPORT INFORMATION
  Report Type: Spontaneous
  Country: US (occurrence: US)
  Receive Date: 20130523
  Receipt Date: 20130523
  Transmission Date: 20140414
  Serious: No
  Sender: FDA-Public Use
  Company Number: US-009507513-1305USA012006

PATIENT
  Age: 78 Year
  Sex: Male

DRUGS (1)
  1. AZASITE [Suspect]
     Indication: DEPOSIT EYE
     Dosage: LEFT EYE
     Route: 047
     Dates: start: 20130417

REACTIONS (3)
  - Therapeutic response decreased [Unknown]
  - Deposit eye [Not Recovered/Not Resolved]
  - Eye irritation [Not Recovered/Not Resolved]
